FAERS Safety Report 4371964-X (Version None)
Quarter: 2004Q2

REPORT INFORMATION
  Report Type: 
  Country: None (occurrence: None)
  Receive Date: 20040602
  Receipt Date: 20040602
  Transmission Date: 20050107
  Serious: Yes (Other)
  Sender: FDA-Public Use
  Company Number: None

PATIENT
  Age: 37 Year
  Sex: Female

DRUGS (2)
  1. GAMMAR-P I.V. [Suspect]
     Indication: ASTHENIA
     Dosage: 30G OVER 8 HOURS INTRAVENOUS
     Route: 042
     Dates: start: 20040212, end: 20040213
  2. POLYGAM S/D [Suspect]
     Indication: ASTHENIA
     Dosage: 30 G OVER 8 HOU INTRAVENOUS
     Route: 042
     Dates: start: 20040319, end: 20040320

REACTIONS (1)
  - HEPATITIS C [None]
